FAERS Safety Report 22615566 (Version 1)
Quarter: 2023Q2

REPORT INFORMATION
  Report Type: Spontaneous
  Country: AU (occurrence: AU)
  Receive Date: 20230619
  Receipt Date: 20230619
  Transmission Date: 20230722
  Serious: Yes (Hospitalization)
  Sender: FDA-Public Use
  Company Number: AU-JUBILANT CADISTA PHARMACEUTICALS-2023AU000587

PATIENT
  Age: 4 Year

DRUGS (1)
  1. CLONIDINE [Suspect]
     Active Substance: CLONIDINE
     Indication: Product used for unknown indication
     Dosage: 125 MCG/KG

REACTIONS (3)
  - Toxicity to various agents [Unknown]
  - Heart rate abnormal [Unknown]
  - Coma scale abnormal [Unknown]
